FAERS Safety Report 13673063 (Version 1)
Quarter: 2017Q2

REPORT INFORMATION
  Report Type: Spontaneous
  Country: US (occurrence: US)
  Receive Date: 20170621
  Receipt Date: 20170621
  Transmission Date: 20170830
  Serious: No
  Sender: FDA-Public Use
  Company Number: US-B.I. PHARMACEUTICALS,INC./RIDGEFIELD-2017-BI-033826

PATIENT
  Age: 77 Year
  Sex: Male

DRUGS (24)
  1. SYNTHROID [Concomitant]
     Active Substance: LEVOTHYROXINE SODIUM
     Indication: THYROIDECTOMY
     Dosage: 1 TABLET 1 TIME DAILY;  FORM STRENGTH: 250 MCG; FORMULATION: TABLET
     Route: 048
     Dates: start: 2006
  2. COQ10 [Concomitant]
     Active Substance: UBIDECARENONE
     Indication: PRODUCT USED FOR UNKNOWN INDICATION
     Dosage: 1 CAPSULE DAILY;  FORM STRENGTH: 100 MG; FORMULATION: CAPSULE
     Route: 048
  3. OXYCODONE [Concomitant]
     Active Substance: OXYCODONE
     Indication: SURGERY
     Dosage: 2 TABLETS Q 4 HR;  FORM STRENGTH: 7.5 MG; FORMULATION: TABLET
     Route: 048
     Dates: start: 20170608
  4. PLAVIX [Concomitant]
     Active Substance: CLOPIDOGREL BISULFATE
     Indication: STENT PLACEMENT
     Dosage: 1 TABLET 1 TIME DAILY;  FORM STRENGTH: 75 MG; FORMULATION: TABLET
     Route: 048
  5. FINASTERIDE. [Concomitant]
     Active Substance: FINASTERIDE
     Indication: PROSTATOMEGALY
  6. TAMSULOSIN-GENERIC [Concomitant]
     Indication: PROSTATOMEGALY
  7. VITAMIN D3 [Concomitant]
     Active Substance: CHOLECALCIFEROL
     Indication: PRODUCT USED FOR UNKNOWN INDICATION
     Dosage: 1 TABLET 1 TIME DAILY;  FORM STRENGTH: 5000 MG; FORMULATION: TABLET
     Route: 055
  8. PROBIOTIC [Concomitant]
     Active Substance: PROBIOTICS NOS
     Indication: PRODUCT USED FOR UNKNOWN INDICATION
     Dosage: 1 CAPSULE QD;
     Route: 065
  9. NATTOKINASE [Concomitant]
     Active Substance: NATTOKINASE
     Indication: DEMENTIA ALZHEIMER^S TYPE
     Dosage: 1 TABLET 1 TIME DAILY;  FORM STRENGTH: 50 MG; FORMULATION: CAPSULE
     Route: 048
  10. TRADJENTA [Suspect]
     Active Substance: LINAGLIPTIN
     Indication: DIABETES MELLITUS
     Dosage: 1 TABLET 1 TIME DAILY;  FORM STRENGTH: 5 MG; FORMULATION: TABLET? ADMINISTRATION CORRECT? YES ?ACTIO
     Route: 048
     Dates: start: 20170611
  11. TAMSULOSIN-GENERIC [Concomitant]
     Indication: POLLAKIURIA
     Dosage: 1 TABLET 1 TIME DAILY;  FORM STRENGTH: 0.4 MG; FORMULATION: CAPSULE
     Route: 048
  12. MAGNESIUM / POTASSIUM [Concomitant]
     Indication: PRODUCT USED FOR UNKNOWN INDICATION
     Dosage: 1 TALET BID;  FORM STRENGTH: 250 MG / 100 MG; FORMULATION: TABLET, DOSE-250 MG / 100 MG, DAILY DOSE
     Route: 048
  13. FENOFIBRATE. [Concomitant]
     Active Substance: FENOFIBRATE
     Indication: BLOOD TRIGLYCERIDES INCREASED
  14. SIMVASTATIN. [Concomitant]
     Active Substance: SIMVASTATIN
     Indication: BLOOD CHOLESTEROL INCREASED
     Dosage: 1 TABLET 1 TIME DAILY;  FORM STRENGTH: 40 MG; FORMULATION: TABLET
     Route: 048
  15. ASPIRIN. [Concomitant]
     Active Substance: ASPIRIN
     Indication: PRODUCT USED FOR UNKNOWN INDICATION
     Dosage: 1 TABLET 1 TIME DAILY;  FORM STRENGTH: 81 MG; FORMULATION: TABLET
     Route: 048
  16. FINASTERIDE. [Concomitant]
     Active Substance: FINASTERIDE
     Indication: POLLAKIURIA
     Dosage: 1 TABLET 1 TIME DAILY;  FORM STRENGTH: 5 MG; FORMULATION: TABLET
     Route: 048
     Dates: start: 2007
  17. PROTONIX [Concomitant]
     Active Substance: PANTOPRAZOLE SODIUM
     Indication: GASTROOESOPHAGEAL REFLUX DISEASE
     Dosage: 1 TABLET 1 TIME DAILY;  FORM STRENGTH: 40 MG; FORMULATION: TABLET
     Route: 048
  18. FENOFIBRATE. [Concomitant]
     Active Substance: FENOFIBRATE
     Indication: BLOOD CHOLESTEROL INCREASED
     Dosage: 1 TABLET 1 TIME DAILY;  FORM STRENGTH: 145 MG; FORMULATION: TABLET
     Route: 048
  19. VITAMIN B12 INJECTION [Concomitant]
     Indication: PRODUCT USED FOR UNKNOWN INDICATION
     Dosage: 1 INJECTION BIWEEKLY;  FORMULATION: SUBCUTANEOUS;
     Route: 058
  20. MULTIVITAMIN [Concomitant]
     Active Substance: VITAMINS
     Indication: PRODUCT USED FOR UNKNOWN INDICATION
     Dosage: 1 TABLET 1 TIME DAILY;  FORMULATION: TABLET;
     Route: 048
  21. ZINC. [Concomitant]
     Active Substance: ZINC
     Indication: PRODUCT USED FOR UNKNOWN INDICATION
     Dosage: 1 TABLET 1 TIME DAILY;  FORM STRENGTH: 30 MG; FORMULATION: TABLET
     Route: 048
  22. RIVASTIGMINE. [Concomitant]
     Active Substance: RIVASTIGMINE
     Indication: DEMENTIA ALZHEIMER^S TYPE
     Dosage: 1 CAPSULE BID;  FORM STRENGTH: 6 MG; FORMULATION: CAPSULE
     Route: 048
     Dates: start: 2016
  23. FOLATE [Concomitant]
     Active Substance: FOLATE SODIUM
     Indication: PRODUCT USED FOR UNKNOWN INDICATION
     Dosage: 1 TABLET 1 TIME DAILY;  FORM STRENGTH: 800 MCG; FORMULATION: TABLET
     Route: 048
  24. VITAMIN K2 [Concomitant]
     Active Substance: MENAQUINONE 6
     Indication: PRODUCT USED FOR UNKNOWN INDICATION
     Dosage: 1 TABLET 1 TIME DAILY;  FORM STRENGTH: 100 MG; FORMULATION: TABLET
     Route: 048

REACTIONS (4)
  - Depression [Recovered/Resolved]
  - Asthenia [Not Recovered/Not Resolved]
  - Loss of personal independence in daily activities [Not Recovered/Not Resolved]
  - Cold sweat [Recovered/Resolved]

NARRATIVE: CASE EVENT DATE: 20170612
